FAERS Safety Report 9785361 (Version 1)
Quarter: 2013Q4

REPORT INFORMATION
  Report Type: Spontaneous
  Country: AU (occurrence: None)
  Receive Date: 20131223
  Receipt Date: 20131223
  Transmission Date: 20140711
  Serious: Yes (Death)
  Sender: FDA-Public Use
  Company Number: 2013P1021890

PATIENT
  Age: 81 Year
  Sex: Male

DRUGS (2)
  1. GRANISETRON [Suspect]
     Indication: VOMITING
  2. 5-AZACYTIDINE [Suspect]
     Indication: MYELODYSPLASTIC SYNDROME
     Route: 058

REACTIONS (7)
  - Colitis ischaemic [None]
  - Peritonitis [None]
  - Large intestine perforation [None]
  - Gastrointestinal gangrene [None]
  - Renal failure [None]
  - Post procedural sepsis [None]
  - Dialysis [None]
